FAERS Safety Report 20544567 (Version 1)
Quarter: 2022Q1

REPORT INFORMATION
  Report Type: Report from Study
  Country: CN (occurrence: CN)
  Receive Date: 20220303
  Receipt Date: 20220303
  Transmission Date: 20220423
  Serious: Yes (Hospitalization)
  Sender: FDA-Public Use
  Company Number: CN-TEVA-2022-CN-2014314

PATIENT
  Age: 63 Year
  Sex: Male

DRUGS (45)
  1. BENDAMUSTINE [Suspect]
     Active Substance: BENDAMUSTINE
     Indication: Diffuse large B-cell lymphoma
     Dosage: 1 IN 21 D
     Route: 042
     Dates: start: 20201215
  2. POLATUZUMAB VEDOTIN [Suspect]
     Active Substance: POLATUZUMAB VEDOTIN
     Indication: Diffuse large B-cell lymphoma
     Dosage: 1 IN 21 D
     Route: 042
     Dates: start: 20201215
  3. RITUXIMAB [Suspect]
     Active Substance: RITUXIMAB
     Indication: Diffuse large B-cell lymphoma
     Dosage: 1 IN 21 D
     Route: 042
     Dates: start: 20201214
  4. SULFAMETHOXAZOLE [Concomitant]
     Active Substance: SULFAMETHOXAZOLE
     Indication: Prophylaxis
     Route: 065
  5. OPRELVEKIN [Concomitant]
     Active Substance: OPRELVEKIN
     Route: 065
     Dates: start: 20210312, end: 20210314
  6. OPRELVEKIN [Concomitant]
     Active Substance: OPRELVEKIN
     Route: 065
     Dates: start: 20210331, end: 20210404
  7. OPRELVEKIN [Concomitant]
     Active Substance: OPRELVEKIN
     Route: 065
     Dates: start: 20210320, end: 20210322
  8. OPRELVEKIN [Concomitant]
     Active Substance: OPRELVEKIN
     Route: 065
     Dates: start: 20210409, end: 20210411
  9. OPRELVEKIN [Concomitant]
     Active Substance: OPRELVEKIN
     Route: 065
     Dates: start: 20210415, end: 20210415
  10. OPRELVEKIN [Concomitant]
     Active Substance: OPRELVEKIN
     Route: 065
     Dates: start: 20210425, end: 20210425
  11. ESOMEPRAZOLE SODIUM [Concomitant]
     Active Substance: ESOMEPRAZOLE SODIUM
     Route: 065
     Dates: start: 20210317, end: 20210318
  12. ESOMEPRAZOLE SODIUM [Concomitant]
     Active Substance: ESOMEPRAZOLE SODIUM
     Route: 065
     Dates: start: 20210407, end: 20210408
  13. ESOMEPRAZOLE SODIUM [Concomitant]
     Active Substance: ESOMEPRAZOLE SODIUM
     Route: 065
     Dates: start: 20210415, end: 20210425
  14. GLUTATHIONE [Concomitant]
     Active Substance: GLUTATHIONE
     Route: 065
     Dates: start: 20210317, end: 20210318
  15. GLUTATHIONE [Concomitant]
     Active Substance: GLUTATHIONE
     Route: 065
     Dates: start: 20210407, end: 20210408
  16. FUROSEMIDE [Concomitant]
     Active Substance: FUROSEMIDE
     Indication: Polyuria
     Route: 065
     Dates: start: 20210317, end: 20210318
  17. SODIUM BICARBONATE [Concomitant]
     Active Substance: SODIUM BICARBONATE
     Route: 065
     Dates: start: 20210317, end: 20210319
  18. ALLOPURINOL [Concomitant]
     Active Substance: ALLOPURINOL
     Route: 065
     Dates: start: 20210317, end: 20210319
  19. GANCICLOVIR [Concomitant]
     Active Substance: GANCICLOVIR
     Indication: Prophylaxis
     Route: 048
     Dates: start: 20201214
  20. PREDNISOLONE ACETATE [Concomitant]
     Active Substance: PREDNISOLONE ACETATE
     Dosage: 100 MILLIGRAM DAILY;
     Route: 048
     Dates: start: 20210317, end: 20210317
  21. PREDNISOLONE ACETATE [Concomitant]
     Active Substance: PREDNISOLONE ACETATE
     Dosage: 100 MILLIGRAM DAILY;
     Route: 048
     Dates: start: 20210407, end: 20210407
  22. DIPHENHYDRAMINE HYDROCHLORIDE [Concomitant]
     Active Substance: DIPHENHYDRAMINE HYDROCHLORIDE
     Route: 065
     Dates: start: 20210317, end: 20210317
  23. DIPHENHYDRAMINE HYDROCHLORIDE [Concomitant]
     Active Substance: DIPHENHYDRAMINE HYDROCHLORIDE
     Route: 065
     Dates: start: 20210407, end: 20210407
  24. DIPHENHYDRAMINE HYDROCHLORIDE [Concomitant]
     Active Substance: DIPHENHYDRAMINE HYDROCHLORIDE
     Route: 065
     Dates: start: 20210419, end: 20210419
  25. DIPHENHYDRAMINE HYDROCHLORIDE [Concomitant]
     Active Substance: DIPHENHYDRAMINE HYDROCHLORIDE
     Route: 065
     Dates: start: 20210420, end: 20210420
  26. DIPHENHYDRAMINE HYDROCHLORIDE [Concomitant]
     Active Substance: DIPHENHYDRAMINE HYDROCHLORIDE
     Route: 065
     Dates: start: 20210416, end: 20210417
  27. IBUPROFEN SUSTAINED RELEASE [Concomitant]
     Route: 065
     Dates: start: 20210317, end: 20210317
  28. IBUPROFEN SUSTAINED RELEASE [Concomitant]
     Route: 065
     Dates: start: 20210407, end: 20210407
  29. IBUPROFEN SUSTAINED RELEASE [Concomitant]
     Route: 065
     Dates: start: 20210415, end: 20210415
  30. IBUPROFEN SUSTAINED RELEASE [Concomitant]
     Route: 065
     Dates: start: 20210417, end: 20210417
  31. TROPISETRON HYDROCHLORIDE [Concomitant]
     Active Substance: TROPISETRON HYDROCHLORIDE
     Route: 065
     Dates: start: 20210317, end: 20210318
  32. TROPISETRON HYDROCHLORIDE [Concomitant]
     Active Substance: TROPISETRON HYDROCHLORIDE
     Route: 065
     Dates: start: 20210407, end: 20210408
  33. MONTMORILLONITE [Concomitant]
     Active Substance: MONTMORILLONITE
     Indication: Diarrhoea
     Route: 065
     Dates: start: 20210415, end: 20210419
  34. BERBERINE [Concomitant]
     Active Substance: BERBERINE
     Indication: Diarrhoea
     Route: 065
     Dates: start: 20210416, end: 20210419
  35. POTASSIUM CHLORIDE [Concomitant]
     Active Substance: POTASSIUM CHLORIDE
     Route: 065
     Dates: start: 20210416, end: 20210421
  36. SPIRONOLACTONE [Concomitant]
     Active Substance: SPIRONOLACTONE
     Route: 065
     Dates: start: 20210415, end: 20210417
  37. PREDNISONE ACETATE [Concomitant]
     Active Substance: PREDNISONE ACETATE
     Dosage: 100 MILLIGRAM DAILY;
     Route: 048
     Dates: start: 20210407, end: 20210407
  38. COMPOUND PARACETAMOL [Concomitant]
     Indication: Pyrexia
     Route: 065
     Dates: start: 20210412, end: 20210414
  39. GRANULOCYTE COLONY-STIMULATING FACTOR NOS [Concomitant]
     Active Substance: GRANULOCYTE COLONY-STIMULATING FACTOR NOS
     Route: 065
     Dates: start: 20210415, end: 20210415
  40. GRANULOCYTE COLONY-STIMULATING FACTOR NOS [Concomitant]
     Active Substance: GRANULOCYTE COLONY-STIMULATING FACTOR NOS
     Route: 065
     Dates: start: 20210416, end: 20210421
  41. GRANULOCYTE COLONY-STIMULATING FACTOR NOS [Concomitant]
     Active Substance: GRANULOCYTE COLONY-STIMULATING FACTOR NOS
     Route: 065
     Dates: start: 20210424, end: 20210425
  42. CARBAZOCHROME SODIUM SULFONATE [Concomitant]
     Active Substance: CARBAZOCHROME SODIUM SULFONATE
     Indication: Haemorrhage
     Route: 065
     Dates: start: 20210415, end: 20210416
  43. CARBAZOCHROME SODIUM SULFONATE [Concomitant]
     Active Substance: CARBAZOCHROME SODIUM SULFONATE
     Route: 065
     Dates: start: 20210419, end: 20210422
  44. BICYCLOL [Concomitant]
     Active Substance: BICYCLOL
     Dates: start: 20210421, end: 20210425
  45. ISOSORBIDE MONONITRATE SR [Concomitant]
     Dosage: SUSTAINED RELEASE
     Route: 065
     Dates: start: 20210415, end: 20210425

REACTIONS (1)
  - Infection [Recovered/Resolved]

NARRATIVE: CASE EVENT DATE: 20210410
